FAERS Safety Report 18708210 (Version 1)
Quarter: 2021Q1

REPORT INFORMATION
  Report Type: Spontaneous
  Country: US (occurrence: US)
  Receive Date: 20210106
  Receipt Date: 20210106
  Transmission Date: 20210419
  Serious: No
  Sender: FDA-Public Use
  Company Number: US-MYLANLABS-2020M1103281

PATIENT
  Sex: Male
  Weight: 91 kg

DRUGS (1)
  1. DEXAMETHASONE SODIUM PHOSPHATE INJECTION USP 4 MG/ML [Suspect]
     Active Substance: DEXAMETHASONE
     Indication: PLANTAR FASCIITIS
     Dosage: (TWICE WEEKLY FOR 6 HOURS FOR 6 WEEKS)
     Route: 061
     Dates: start: 2020, end: 20201203

REACTIONS (1)
  - Off label use [Unknown]
